FAERS Safety Report 6970345-X (Version None)
Quarter: 2010Q3

REPORT INFORMATION
  Report Type: 
  Country: None (occurrence: None)
  Receive Date: 20100908
  Receipt Date: 20100906
  Transmission Date: 20110219
  Serious: Yes (Hospitalization)
  Sender: FDA-Public Use
  Company Number: DE-SANOFI-AVENTIS-2010SA046464

PATIENT
  Age: 68 Year
  Sex: Male

DRUGS (1)
  1. MULTAQ [Suspect]
     Indication: ATRIAL FIBRILLATION
     Route: 048

REACTIONS (5)
  - COUGH [None]
  - DYSPNOEA [None]
  - PAIN [None]
  - PLEURAL EFFUSION [None]
  - PLEURISY [None]
